FAERS Safety Report 15582170 (Version 2)
Quarter: 2018Q4

REPORT INFORMATION
  Report Type: Report from Study
  Country: US (occurrence: US)
  Receive Date: 20181105
  Receipt Date: 20181129
  Transmission Date: 20190205
  Serious: Yes (Other)
  Sender: FDA-Public Use
  Company Number: US-BRISTOL-MYERS SQUIBB COMPANY-BMS-2018-101627

PATIENT
  Sex: Male
  Weight: 92.97 kg

DRUGS (2)
  1. NIVOLUMAB [Suspect]
     Active Substance: NIVOLUMAB
     Indication: METASTASES TO LYMPH NODES
     Route: 065
  2. NIVOLUMAB [Suspect]
     Active Substance: NIVOLUMAB
     Indication: HEPATOCELLULAR CARCINOMA
     Dosage: 480 MG, Q4WK
     Route: 042
     Dates: start: 20180822

REACTIONS (13)
  - Tongue disorder [Unknown]
  - Temperature intolerance [Unknown]
  - Myalgia [Unknown]
  - Haemorrhoidal haemorrhage [Unknown]
  - Dry skin [Unknown]
  - Lichen planus [Unknown]
  - Arthralgia [Unknown]
  - Asthenia [Unknown]
  - Nasopharyngitis [Unknown]
  - Urinary tract infection [Unknown]
  - Small intestinal obstruction [Recovering/Resolving]
  - Pruritus generalised [Unknown]
  - Psoriasis [Unknown]
